FAERS Safety Report 6527387-8 (Version None)
Quarter: 2010Q1

REPORT INFORMATION
  Report Type: 
  Country: None (occurrence: None)
  Receive Date: 20100104
  Receipt Date: 20100104
  Transmission Date: 20100710
  Serious: No
  Sender: FDA-Public Use
  Company Number: None

PATIENT
  Age: 62 Year
  Sex: Male
  Weight: 87.0906 kg

DRUGS (1)
  1. ZICAM COLD REMEDY NASAL GEL [Suspect]
     Indication: NASOPHARYNGITIS
     Dosage: NASAL SPRAY 2 TIMES 12-15 TIMES ANNUAL NASAL
     Route: 045
     Dates: start: 19991225, end: 20090301

REACTIONS (1)
  - ANOSMIA [None]
